FAERS Safety Report 9466055 (Version 2)
Quarter: 2014Q2

REPORT INFORMATION
  Report Type: Spontaneous
  Country: US (occurrence: US)
  Receive Date: 20130820
  Receipt Date: 20140429
  Transmission Date: 20141212
  Serious: Yes (Death, Hospitalization)
  Sender: FDA-Public Use
  Company Number: US-B.I. PHARMACEUTICALS,INC./RIDGEFIELD-2013-BI-25636BP

PATIENT
  Age: 79 Year
  Sex: Male

DRUGS (12)
  1. PRADAXA [Suspect]
     Indication: ANTICOAGULANT THERAPY
     Dosage: 150 MG
     Route: 065
     Dates: start: 20110603, end: 20110808
  2. PRADAXA [Suspect]
     Indication: ATRIAL FIBRILLATION
  3. FUROSEMIDE [Concomitant]
     Route: 065
  4. LISINOPRIL [Concomitant]
     Route: 048
  5. TYLENOL [Concomitant]
     Route: 048
  6. TRIAMTERENE/HYDROCHLOROTHIAZIDE [Concomitant]
     Route: 065
  7. METFORMIN [Concomitant]
     Route: 065
  8. PERIDEX [Concomitant]
     Route: 065
  9. ALLOPURINOL [Concomitant]
     Dosage: 150 MG
     Route: 048
  10. METOPROLOL [Concomitant]
     Dosage: 25 MG
     Route: 048
  11. LOVASTATIN [Concomitant]
     Dosage: 40 MG
     Route: 048
  12. FLOMAX [Concomitant]
     Dosage: 40 MG
     Route: 048

REACTIONS (5)
  - Haemorrhage intracranial [Fatal]
  - Coagulopathy [Unknown]
  - Thrombocytopenia [Unknown]
  - Fall [Unknown]
  - Head injury [Unknown]
